FAERS Safety Report 20422523 (Version 2)
Quarter: 2022Q3

REPORT INFORMATION
  Report Type: Report from Study
  Country: US (occurrence: US)
  Receive Date: 20220203
  Receipt Date: 20220811
  Transmission Date: 20221027
  Serious: No
  Sender: FDA-Public Use
  Company Number: US-AURINIA PHARMACEUTICALS INC.-AUR-000803

PATIENT
  Age: 51 Year
  Sex: Female

DRUGS (7)
  1. LUPKYNIS [Suspect]
     Active Substance: VOCLOSPORIN
     Indication: Lupus nephritis
     Dosage: 23.7 MILLIGRAM, BID
     Route: 048
     Dates: start: 20211203
  2. PLAQUENIL [Concomitant]
     Active Substance: HYDROXYCHLOROQUINE SULFATE
     Indication: Product used for unknown indication
     Dosage: 200 MILLIGRAM, QD
     Dates: start: 1999
  3. MYCOPHENOLIC ACID [Concomitant]
     Active Substance: MYCOPHENOLIC ACID
     Indication: Product used for unknown indication
     Dosage: 1000 MILLIGRAM, BID
     Dates: start: 2021
  4. CALCIUM [Concomitant]
     Active Substance: CALCIUM
     Indication: Product used for unknown indication
     Dosage: 600 MILLIGRAM, BID
     Dates: start: 2000
  5. VITAMIN C [Concomitant]
     Active Substance: ASCORBIC ACID
     Indication: Product used for unknown indication
     Dosage: UNK
     Dates: end: 202201
  6. HYDROCORTISONE [Concomitant]
     Active Substance: HYDROCORTISONE
     Indication: Product used for unknown indication
     Dosage: UNK AS NEEDED
     Dates: start: 202106
  7. TRIAMCINOLONE [Concomitant]
     Active Substance: TRIAMCINOLONE
     Indication: Product used for unknown indication
     Dosage: UNK AS NEEDED
     Dates: start: 202106

REACTIONS (4)
  - Nausea [Not Recovered/Not Resolved]
  - Flatulence [Recovering/Resolving]
  - Abdominal pain upper [Recovering/Resolving]
  - Product odour abnormal [Not Recovered/Not Resolved]

NARRATIVE: CASE EVENT DATE: 20211207
